FAERS Safety Report 5419563-2 (Version None)
Quarter: 2007Q4

REPORT INFORMATION
  Report Type: 
  Country: None (occurrence: None)
  Receive Date: 20070820
  Receipt Date: 20070809
  Transmission Date: 20080405
  Serious: Yes (Hospitalization)
  Sender: FDA-Public Use
  Company Number: FR-AVENTIS-200712559FR

PATIENT
  Age: 51 Year
  Sex: Female

DRUGS (4)
  1. RIFADIN [Suspect]
     Route: 042
     Dates: start: 20070420, end: 20070504
  2. HEPARIN [Suspect]
     Indication: VENOUS THROMBOSIS
     Route: 042
     Dates: start: 20070419, end: 20070428
  3. CALCIPARINE [Suspect]
     Indication: VENOUS THROMBOSIS
     Route: 058
     Dates: start: 20070504, end: 20070509
  4. VANCOMYCINE MERCK [Suspect]
     Route: 042
     Dates: start: 20070417, end: 20070504

REACTIONS (4)
  - DERMATITIS EXFOLIATIVE [None]
  - EOSINOPHILIA [None]
  - PYREXIA [None]
  - RASH SCARLATINIFORM [None]
